FAERS Safety Report 10050307 (Version 1)
Quarter: 2014Q2

REPORT INFORMATION
  Report Type: Spontaneous
  Country: JP (occurrence: JP)
  Receive Date: 20140401
  Receipt Date: 20140401
  Transmission Date: 20141212
  Serious: Yes (Death, Hospitalization, Other)
  Sender: FDA-Public Use
  Company Number: PHHY2014JP034379

PATIENT
  Age: 87 Year
  Sex: Male
  Weight: 39 kg

DRUGS (3)
  1. DIGOXIN [Suspect]
     Indication: CARDIAC FAILURE CONGESTIVE
  2. DIGOXIN [Suspect]
     Indication: CORONARY ARTERY DISEASE
  3. FUROSEMIDE [Concomitant]

REACTIONS (16)
  - Death [Fatal]
  - Toxicity to various agents [Unknown]
  - Hypernatraemia [Unknown]
  - Hypoproteinaemia [Recovered/Resolved]
  - C-reactive protein increased [Recovered/Resolved]
  - Dehydration [Recovered/Resolved]
  - Blood potassium decreased [Recovered/Resolved]
  - Hypotension [Unknown]
  - Altered state of consciousness [Unknown]
  - Pyrexia [Unknown]
  - Increased viscosity of bronchial secretion [Unknown]
  - Bradycardia [Unknown]
  - Vomiting [Unknown]
  - Confusional state [Unknown]
  - Renal failure [Unknown]
  - Anaemia [Unknown]
